FAERS Safety Report 4387676-2 (Version None)
Quarter: 2004Q2

REPORT INFORMATION
  Report Type: 
  Country: None (occurrence: None)
  Receive Date: 20040629
  Receipt Date: 20040629
  Transmission Date: 20050107
  Serious: Yes (Life-Threatening, Hospitalization)
  Sender: FDA-Public Use
  Company Number: None

PATIENT
  Age: 61 Year
  Sex: Male
  Weight: 155.1302 kg

DRUGS (4)
  1. ESTRAMUSTINE 140 MG [Suspect]
     Indication: PULMONARY EMBOLISM
     Dosage: 280 NG TID PO
     Route: 048
     Dates: start: 20040412, end: 20040426
  2. ESTRAMUSTINE 140 MG [Suspect]
     Indication: PULMONARY EMBOLISM
     Dosage: 280 NG TID PO
     Route: 048
     Dates: start: 20040503, end: 20040509
  3. ETOPOSIDE [Concomitant]
  4. LUPRON [Concomitant]

REACTIONS (8)
  - COUGH [None]
  - FATIGUE [None]
  - FLUID OVERLOAD [None]
  - NAUSEA [None]
  - OEDEMA PERIPHERAL [None]
  - PULMONARY EMBOLISM [None]
  - UPPER RESPIRATORY TRACT INFECTION [None]
  - VOMITING [None]
